FAERS Safety Report 21910154 (Version 1)
Quarter: 2023Q1

REPORT INFORMATION
  Report Type: Spontaneous
  Country: US (occurrence: US)
  Receive Date: 20230125
  Receipt Date: 20230125
  Transmission Date: 20230417
  Serious: No
  Sender: FDA-Public Use
  Company Number: US-ALLERGAN-2202762US

PATIENT
  Age: 36 Year
  Sex: Female

DRUGS (2)
  1. BOTOX COSMETIC [Suspect]
     Active Substance: ONABOTULINUMTOXINA
     Indication: Skin cosmetic procedure
     Dosage: UNK, SINGLE
     Dates: start: 20220114, end: 20220114
  2. Medication that causes dry mouth [Concomitant]

REACTIONS (6)
  - Off label use [Unknown]
  - Fatigue [Unknown]
  - Multiple use of single-use product [Unknown]
  - Hyperhidrosis [Unknown]
  - Myalgia [Unknown]
  - Dry mouth [Unknown]

NARRATIVE: CASE EVENT DATE: 20220114
